FAERS Safety Report 7308174-X (Version None)
Quarter: 2011Q1

REPORT INFORMATION
  Report Type: 
  Country: None (occurrence: None)
  Receive Date: 20110223
  Receipt Date: 20110211
  Transmission Date: 20110831
  Serious: Yes (Hospitalization)
  Sender: FDA-Public Use
  Company Number: US-ELI_LILLY_AND_COMPANY-US201102003284

PATIENT
  Sex: Female
  Weight: 51.26 kg

DRUGS (10)
  1. TYLENOL (CAPLET) [Concomitant]
     Dosage: UNK, AS NEEDED
  2. NECITUMUMAB (11F8) (LY3012211) [Suspect]
     Indication: NON-SMALL CELL LUNG CANCER
     Dosage: 800 MG, OTHER
     Route: 042
     Dates: start: 20101105
  3. GEMCITABINE HYDROCHLORIDE [Suspect]
     Indication: NON-SMALL CELL LUNG CANCER
     Dosage: 1863 MG, OTHER
     Route: 042
     Dates: start: 20101105
  4. ALEVE [Concomitant]
     Dosage: UNK, AS NEEDED
  5. MAGNESIUM OXIDE [Concomitant]
     Dosage: 400 D/F, 2/D
  6. ZOFRAN [Concomitant]
     Dosage: 8 MG, AS NEEDED
  7. CISPLATIN [Suspect]
     Dosage: 84 MG, OTHER
     Route: 042
     Dates: start: 20101105
  8. LORAZEPAM [Concomitant]
     Dosage: 0.5 MG, AS NEEDED
  9. ZANTAC [Concomitant]
     Dosage: 150 MG, 2/D
  10. ATENOLOL [Concomitant]
     Dosage: 12.5 MG, DAILY (1/D)

REACTIONS (1)
  - DEHYDRATION [None]
